FAERS Safety Report 13038082 (Version 1)
Quarter: 2016Q4

REPORT INFORMATION
  Report Type: Spontaneous
  Country: US (occurrence: US)
  Receive Date: 20161214
  Receipt Date: 20161214
  Transmission Date: 20170207
  Serious: Yes (Hospitalization)
  Sender: FDA-Public Use
  Company Number: None

PATIENT
  Age: 77 Year
  Sex: Female
  Weight: 62.5 kg

DRUGS (7)
  1. ZOFRAN [Concomitant]
     Active Substance: ONDANSETRON HYDROCHLORIDE
  2. ATORVASTATIN [Concomitant]
     Active Substance: ATORVASTATIN
  3. OMEPRAZOLE. [Concomitant]
     Active Substance: OMEPRAZOLE
  4. DALTEPARIN 10,000 DAILY [Suspect]
     Active Substance: DALTEPARIN
     Indication: SPLENIC VEIN THROMBOSIS
     Dates: start: 20160512, end: 20161021
  5. HYDROCHLOROTHIAZIDE. [Concomitant]
     Active Substance: HYDROCHLOROTHIAZIDE
  6. TRAZODONE [Concomitant]
     Active Substance: TRAZODONE HYDROCHLORIDE
  7. CELEXA [Concomitant]
     Active Substance: CITALOPRAM HYDROBROMIDE

REACTIONS (2)
  - Leiomyosarcoma [None]
  - Disease progression [None]

NARRATIVE: CASE EVENT DATE: 20161022
